FAERS Safety Report 9232879 (Version 1)
Quarter: 2013Q2

REPORT INFORMATION
  Report Type: Spontaneous
  Country: US (occurrence: None)
  Receive Date: 20130415
  Receipt Date: 20130415
  Transmission Date: 20140414
  Serious: Yes (Hospitalization)
  Sender: FDA-Public Use
  Company Number: None

PATIENT
  Age: 48 Year
  Sex: Male
  Weight: 107.96 kg

DRUGS (1)
  1. ISONIAZID 300 MG X3 ONCE A WEEK UDL ROCKFORD UM36 [Suspect]
     Indication: LATENT TUBERCULOSIS
     Dosage: ONE PILL ONCE A DAY PO
     Route: 048
     Dates: start: 20130328, end: 20130411

REACTIONS (4)
  - Chills [None]
  - Pyrexia [None]
  - Dyspnoea [None]
  - Stomatitis [None]
